FAERS Safety Report 14569190 (Version 4)
Quarter: 2018Q1

REPORT INFORMATION
  Report Type: Report from Study
  Country: US (occurrence: US)
  Receive Date: 20180223
  Receipt Date: 20180322
  Transmission Date: 20180509
  Serious: Yes (Other)
  Sender: FDA-Public Use
  Company Number: US-GILEAD-2018-0313816

PATIENT
  Age: 45 Year
  Sex: Male

DRUGS (4)
  1. AMBRISENTAN [Suspect]
     Active Substance: AMBRISENTAN
     Indication: PRODUCT USED FOR UNKNOWN INDICATION
     Dosage: 10 MG, QD
     Route: 065
     Dates: start: 20171227
  2. WARFARIN [Concomitant]
     Active Substance: WARFARIN
  3. VELETRI [Concomitant]
     Active Substance: EPOPROSTENOL
  4. ADCIRCA [Concomitant]
     Active Substance: TADALAFIL

REACTIONS (16)
  - Thrombosis in device [Recovered/Resolved]
  - Pain in jaw [Unknown]
  - Headache [Unknown]
  - Nausea [Not Recovered/Not Resolved]
  - Rheumatoid arthritis [Not Recovered/Not Resolved]
  - Faeces soft [Unknown]
  - Peripheral swelling [Unknown]
  - Unevaluable event [Unknown]
  - Nasal congestion [Unknown]
  - Device occlusion [Recovered/Resolved]
  - Arthralgia [Unknown]
  - Device malfunction [Unknown]
  - Diarrhoea [Not Recovered/Not Resolved]
  - Dyspnoea [Not Recovered/Not Resolved]
  - Device breakage [Unknown]
  - Fluid retention [Unknown]

NARRATIVE: CASE EVENT DATE: 20180129
